FAERS Safety Report 5581640-3 (Version None)
Quarter: 2008Q1

REPORT INFORMATION
  Report Type: 
  Country: None (occurrence: None)
  Receive Date: 20080104
  Receipt Date: 20070723
  Transmission Date: 20080703
  Serious: Yes (Hospitalization, Other)
  Sender: FDA-Public Use
  Company Number: US-ASTRAZENECA-2006UW03270

PATIENT
  Age: 22 Year
  Sex: Male
  Weight: 113.6 kg

DRUGS (2)
  1. SEROQUEL [Suspect]
     Indication: PSYCHOTIC BEHAVIOUR
     Dosage: 100 MG -300 MG
     Route: 048
     Dates: start: 19990101, end: 20061001
  2. SEROQUEL [Suspect]
     Indication: INSOMNIA
     Dosage: 100 MG -300 MG
     Route: 048
     Dates: start: 19990101, end: 20061001

REACTIONS (9)
  - AMNESIA [None]
  - APPENDICECTOMY [None]
  - BLOOD TRIGLYCERIDES INCREASED [None]
  - DIABETES MELLITUS [None]
  - DIABETIC NEUROPATHY [None]
  - FOOT OPERATION [None]
  - HIP ARTHROPLASTY [None]
  - HYPERLIPIDAEMIA [None]
  - WEIGHT INCREASED [None]
